FAERS Safety Report 6855204-5 (Version None)
Quarter: 2010Q3

REPORT INFORMATION
  Report Type: 
  Country: None (occurrence: None)
  Receive Date: 20100718
  Receipt Date: 20100714
  Transmission Date: 20110219
  Serious: Yes (Other)
  Sender: FDA-Public Use
  Company Number: US-BRISTOL-MYERS SQUIBB COMPANY-15187131

PATIENT
  Sex: Female

DRUGS (2)
  1. COUMADIN [Suspect]
  2. COUMADIN [Suspect]

REACTIONS (3)
  - ARTHRALGIA [None]
  - PAIN IN EXTREMITY [None]
  - THROMBOSIS [None]
